FAERS Safety Report 8691554 (Version 4)
Quarter: 2012Q4

REPORT INFORMATION
  Report Type: 
  Country: JP (occurrence: JP)
  Receive Date: 20120730
  Receipt Date: 20120927
  Transmission Date: 20130627
  Serious: Yes (Death)
  Sender: FDA-Public Use
  Company Number: JP-PFIZER INC-2012179037

PATIENT
  Age: 84 Year
  Sex: Male
  Weight: 51 kg

DRUGS (12)
  1. UNASYN-S [Suspect]
     Indication: PNEUMONIA
     Dosage: 1.5 g/day
     Route: 041
     Dates: start: 20120721
  2. PROPOFOL [Concomitant]
     Indication: SEDATION
     Dosage: 500 mg, 1x/day
     Route: 042
     Dates: start: 20120715, end: 20120720
  3. BISOLVON [Concomitant]
     Dosage: 4 mg, 1x/day
     Route: 042
  4. FINIBAX [Concomitant]
     Indication: PNEUMONIA
     Dosage: 0.25 /day
     Route: 041
     Dates: start: 20120715, end: 20120720
  5. GASTER [Concomitant]
     Dosage: 20 mg, 1x/day
     Route: 042
  6. CATABON [Concomitant]
     Dosage: UNK
  7. SOLU-MEDROL [Concomitant]
     Dosage: 500 mg, 1x/day
     Route: 042
  8. BOSMIN [Concomitant]
     Dosage: 1 mg, UNK
     Route: 042
  9. MEYLON [Concomitant]
     Dosage: 250 ml, 1x/day
     Route: 042
  10. ATROPINE [Concomitant]
     Dosage: 0.05 %, 1x/day
     Route: 042
  11. INOVAN [Concomitant]
     Indication: URINE OUTPUT DECREASED
     Dosage: 3 ml, weekly
     Route: 042
     Dates: start: 20120716, end: 20120720
  12. INOVAN [Concomitant]
     Indication: OEDEMA

REACTIONS (1)
  - Blood pressure decreased [Fatal]
